FAERS Safety Report 17855046 (Version 1)
Quarter: 2020Q2

REPORT INFORMATION
  Report Type: Spontaneous
  Country: US (occurrence: US)
  Receive Date: 20200603
  Receipt Date: 20200603
  Transmission Date: 20200714
  Serious: Yes (Other)
  Sender: FDA-Public Use
  Company Number: US-SUPERNUS PHARMACEUTICALS, INC.-2020SUP00088

PATIENT
  Age: 60 Year
  Sex: Male
  Weight: 77.1 kg

DRUGS (25)
  1. OXCARBAZEPINE. [Suspect]
     Active Substance: OXCARBAZEPINE
     Dosage: UNK
  2. OXTELLAR XR [Suspect]
     Active Substance: OXCARBAZEPINE
     Dosage: 600 MG, 1X/DAY AT NIGHT AT 5 PM
     Route: 048
     Dates: start: 2020, end: 20200308
  3. DEPAKOTE [Suspect]
     Active Substance: DIVALPROEX SODIUM
     Dosage: LOW DOSE
     Dates: start: 20200228, end: 20200304
  4. LAMICTAL [Concomitant]
     Active Substance: LAMOTRIGINE
     Dosage: 400 MG, 2X/DAY
  5. APTIOM [Suspect]
     Active Substance: ESLICARBAZEPINE ACETATE
     Dosage: 800 MG, 1X/DAY IN THE MORNING OR EVENING
  6. CELEXA [Concomitant]
     Active Substance: CITALOPRAM HYDROBROMIDE
     Dosage: 40 MG, 1X/DAY
  7. BUSPIRONE HYDROCHLORIDE. [Concomitant]
     Active Substance: BUSPIRONE HYDROCHLORIDE
     Dosage: 15 MG, 3X/DAY
  8. DEPAKOTE [Suspect]
     Active Substance: DIVALPROEX SODIUM
     Dosage: UNK, 2X/DAY
     Dates: start: 20200305, end: 20200307
  9. CELEXA [Concomitant]
     Active Substance: CITALOPRAM HYDROBROMIDE
     Dosage: 60 MG, 1X/DAY
  10. LAMICTAL [Concomitant]
     Active Substance: LAMOTRIGINE
     Dosage: 400 MG, 3X/DAY
  11. CENTRUM SILVER [Concomitant]
     Active Substance: MINERALS\VITAMINS
     Dosage: UNK, 1X/DAY
  12. LISINOPRIL. [Concomitant]
     Active Substance: LISINOPRIL
     Dosage: 15 MG, 1X/DAY
  13. OXTELLAR XR [Suspect]
     Active Substance: OXCARBAZEPINE
     Indication: EPILEPSY
     Dosage: 600 MG, TWICE DAILY OR 1200MG ONCE DAILY
     Route: 048
     Dates: start: 20200122, end: 20200203
  14. OXTELLAR XR [Suspect]
     Active Substance: OXCARBAZEPINE
     Dosage: 600 MG, IN THE MORNING AND 1200 MG IN THE EVENING (DOSES HAVE BEEN ADJUSTED ON SEVERAL OCCASIONS IN
     Route: 048
     Dates: start: 20200203, end: 2020
  15. COD LIVER OIL [Concomitant]
     Active Substance: COD LIVER OIL
     Dosage: 1000 MG, 1X/DAY
  16. OXTELLAR XR [Suspect]
     Active Substance: OXCARBAZEPINE
     Dosage: 1200 MG, 1X/DAY (600 MG MORNING AND 1200 MG IN THE EVENING)
     Dates: start: 20200203, end: 2020
  17. OXTELLAR XR [Suspect]
     Active Substance: OXCARBAZEPINE
     Dosage: 600 MG, 2X/DAY (ONE AT 5 PM AND ONE AT 8 PM)
     Route: 048
     Dates: start: 202003
  18. OXTELLAR XR [Suspect]
     Active Substance: OXCARBAZEPINE
     Indication: PETIT MAL EPILEPSY
     Dosage: 300 MG, 1X/DAY AT NIGHT AT 5 PM
     Route: 048
     Dates: start: 20200309
  19. OXTELLAR XR [Suspect]
     Active Substance: OXCARBAZEPINE
     Indication: EPILEPSY
  20. BAYER LOW DOSE (ASPIRIN) [Concomitant]
     Dosage: UNK, 1X/DAY
  21. CRESTOR [Concomitant]
     Active Substance: ROSUVASTATIN CALCIUM
     Dosage: 10 MG, 1X/DAY
  22. OXTELLAR XR [Suspect]
     Active Substance: OXCARBAZEPINE
     Indication: PETIT MAL EPILEPSY
     Dosage: UNK
     Dates: start: 20181109, end: 20200122
  23. RISPERDAL [Concomitant]
     Active Substance: RISPERIDONE
     Dosage: 0.5 MG, 2X/DAY
  24. LAMICTAL [Concomitant]
     Active Substance: LAMOTRIGINE
     Dosage: 4 DOSAGE UNITS, 1X/DAY
  25. HYDROXYZINE HYDROCHLORIDE. [Concomitant]
     Active Substance: HYDROXYZINE HYDROCHLORIDE
     Dosage: 25 MG, 1X/DAY AT BEDTIME

REACTIONS (18)
  - Therapeutic product effect incomplete [Recovering/Resolving]
  - Abnormal behaviour [Recovering/Resolving]
  - Agitation [Recovered/Resolved]
  - Confusional state [Recovered/Resolved]
  - Conductive deafness [Not Recovered/Not Resolved]
  - Dizziness [Recovered/Resolved]
  - Somnolence [Recovered/Resolved]
  - Seizure [Recovering/Resolving]
  - Paranoia [Recovered/Resolved]
  - Malaise [Unknown]
  - Tremor [Recovering/Resolving]
  - Speech disorder [Not Recovered/Not Resolved]
  - Hyponatraemia [Recovering/Resolving]
  - Psychotic disorder [Recovered/Resolved]
  - Mental disorder [Recovered/Resolved]
  - Disorientation [Not Recovered/Not Resolved]
  - Drug interaction [Recovered/Resolved]
  - Anger [Recovered/Resolved]

NARRATIVE: CASE EVENT DATE: 20160402
